FAERS Safety Report 20088071 (Version 1)
Quarter: 2021Q4

REPORT INFORMATION
  Report Type: Spontaneous
  Country: HR (occurrence: HR)
  Receive Date: 20211118
  Receipt Date: 20211118
  Transmission Date: 20220303
  Serious: Yes (Other)
  Sender: FDA-Public Use
  Company Number: HR-009507513-2111HRV005109

PATIENT
  Age: 61 Year
  Sex: Male

DRUGS (3)
  1. KEYTRUDA [Suspect]
     Active Substance: PEMBROLIZUMAB
     Dosage: 200 MILLIGRAM
  2. CISPLATIN [Suspect]
     Active Substance: CISPLATIN
  3. PEMETREXED [Suspect]
     Active Substance: PEMETREXED

REACTIONS (3)
  - Malignant neoplasm progression [Unknown]
  - Paraneoplastic rash [Recovered/Resolved]
  - Rash papular [Recovered/Resolved]
